FAERS Safety Report 20505943 (Version 2)
Quarter: 2022Q1

REPORT INFORMATION
  Report Type: Spontaneous
  Country: TN (occurrence: TN)
  Receive Date: 20220223
  Receipt Date: 20220228
  Transmission Date: 20220423
  Serious: Yes (Other)
  Sender: FDA-Public Use
  Company Number: TN-PFIZER INC-202200231256

PATIENT
  Age: 31 Year
  Sex: Male

DRUGS (2)
  1. FILGRASTIM [Suspect]
     Active Substance: FILGRASTIM
     Indication: Ewing^s sarcoma
     Dosage: SIX DAILY INJECTIONS
  2. FILGRASTIM [Suspect]
     Active Substance: FILGRASTIM
     Indication: Febrile neutropenia

REACTIONS (2)
  - Acute generalised exanthematous pustulosis [Recovered/Resolved]
  - Skin toxicity [Recovered/Resolved]
